FAERS Safety Report 13630353 (Version 1)
Quarter: 2017Q2

REPORT INFORMATION
  Report Type: Spontaneous
  Country: US (occurrence: US)
  Receive Date: 20170531
  Receipt Date: 20170531
  Transmission Date: 20170830
  Serious: No
  Sender: FDA-Public Use
  Company Number: US-ASTELLAS-1296087

PATIENT
  Sex: Female

DRUGS (6)
  1. LOVASTATIN. [Concomitant]
     Active Substance: LOVASTATIN
  2. ATENOLOL. [Concomitant]
     Active Substance: ATENOLOL
  3. TYLENOL [Concomitant]
     Active Substance: ACETAMINOPHEN
  4. DIOVAN [Concomitant]
     Active Substance: VALSARTAN
  5. TARCEVA [Suspect]
     Active Substance: ERLOTINIB HYDROCHLORIDE
     Indication: LUNG NEOPLASM MALIGNANT
     Route: 048
     Dates: start: 20131031
  6. NORTRIPTYLINE [Concomitant]
     Active Substance: NORTRIPTYLINE

REACTIONS (1)
  - Diarrhoea [Unknown]
